FAERS Safety Report 4666362-5 (Version None)
Quarter: 2005Q2

REPORT INFORMATION
  Report Type: 
  Country: None (occurrence: None)
  Receive Date: 20050518
  Receipt Date: 20050505
  Transmission Date: 20051028
  Serious: Yes (Hospitalization)
  Sender: FDA-Public Use
  Company Number: 2005072194

PATIENT
  Age: 88 Year
  Sex: Female

DRUGS (4)
  1. BEXTRA [Suspect]
     Indication: BACK PAIN
     Dosage: 1 IN 1 D, ORAL
     Route: 048
     Dates: start: 20041101, end: 20041201
  2. ALL OTHER THERAPEUTIC PRODUCTS (ALL OTHER THERAPEUTIC PRODUCTS) [Concomitant]
  3. VITAMINS (VITAMINS) [Concomitant]
  4. CALCIUM (CALCIUM) [Concomitant]

REACTIONS (6)
  - HEART RATE DECREASED [None]
  - IMPLANT SITE INFECTION [None]
  - MYOCARDIAL INFARCTION [None]
  - NAUSEA [None]
  - PACEMAKER COMPLICATION [None]
  - WEIGHT DECREASED [None]
